FAERS Safety Report 4459707-2 (Version None)
Quarter: 2004Q3

REPORT INFORMATION
  Report Type: 
  Country: None (occurrence: None)
  Receive Date: 20040923
  Receipt Date: 20040913
  Transmission Date: 20050211
  Serious: Yes (Death, Hospitalization, Other)
  Sender: FDA-Public Use
  Company Number: US-JNJFOC-20040903656

PATIENT
  Age: 33 Year
  Sex: Female

DRUGS (2)
  1. TYLENOL ARTHRITIS (ACETAMINOPHEN) [Suspect]
     Indication: SUICIDE ATTEMPT
     Dosage: 130 G, 1 IN 1 TOTAL, ORAL
     Route: 048
  2. TYLENOL PM EXTRA STRENGTH (ACETAMINOPHEN/DIPHENHYDRAMINE HCL) [Suspect]
     Indication: SUICIDE ATTEMPT
     Dosage: 225 DOSE (S), 1 IN 1 TOTAL, ORAL
     Route: 048

REACTIONS (11)
  - ASPARTATE AMINOTRANSFERASE INCREASED [None]
  - BLOOD PH DECREASED [None]
  - BLOOD PRESSURE DECREASED [None]
  - DEPRESSED LEVEL OF CONSCIOUSNESS [None]
  - HEART RATE INCREASED [None]
  - MULTIPLE DRUG OVERDOSE [None]
  - OXYGEN SATURATION DECREASED [None]
  - PCO2 DECREASED [None]
  - PNEUMONIA ASPIRATION [None]
  - TRANSAMINASES INCREASED [None]
  - VOMITING [None]
